FAERS Safety Report 9289869 (Version 1)
Quarter: 2013Q2

REPORT INFORMATION
  Report Type: Spontaneous
  Country: JP (occurrence: JP)
  Receive Date: 20130515
  Receipt Date: 20130515
  Transmission Date: 20140414
  Serious: Yes (Other)
  Sender: FDA-Public Use
  Company Number: PHHY2013JP047780

PATIENT
  Age: 64 Year
  Sex: Female

DRUGS (1)
  1. ZOMETA [Suspect]
     Dosage: 4 MG PER ADMINISTRATION
     Route: 041
     Dates: start: 200805, end: 201009

REACTIONS (2)
  - Osteonecrosis of jaw [Unknown]
  - Osteomyelitis [Unknown]
